FAERS Safety Report 7298159-4 (Version None)
Quarter: 2011Q1

REPORT INFORMATION
  Report Type: 
  Country: None (occurrence: None)
  Receive Date: 20110208
  Receipt Date: 20110131
  Transmission Date: 20110831
  Serious: Yes (Other)
  Sender: FDA-Public Use
  Company Number: 2011SP004665

PATIENT
  Sex: Female

DRUGS (3)
  1. CONCERTA [Concomitant]
  2. SERTRALIN [Concomitant]
  3. IMPLANON [Suspect]
     Indication: PRODUCT USED FOR UNKNOWN INDICATION
     Dates: start: 20100301

REACTIONS (3)
  - PREGNANCY WITH IMPLANT CONTRACEPTIVE [None]
  - ABORTION SPONTANEOUS [None]
  - DRUG EXPOSURE DURING PREGNANCY [None]
